FAERS Safety Report 20991132 (Version 3)
Quarter: 2025Q4

REPORT INFORMATION
  Report Type: Spontaneous
  Country: EU (occurrence: EU)
  Receive Date: 20220622
  Receipt Date: 20251027
  Transmission Date: 20260118
  Serious: Yes (Other)
  Sender: AUROBINDO
  Company Number: EU-MLMSERVICE-20220608-3594263-1

PATIENT
  Age: 67 Year
  Sex: Female

DRUGS (18)
  1. ZOLPIDEM [Suspect]
     Active Substance: ZOLPIDEM TARTRATE
     Indication: Insomnia
     Dosage: 2 DOSAGE FORM, ONCE A DAY
     Route: 065
  2. ZOLPIDEM [Suspect]
     Active Substance: ZOLPIDEM TARTRATE
     Dosage: 20 MILLIGRAM
     Route: 065
  3. FOLIC ACID [Concomitant]
     Active Substance: FOLIC ACID
     Indication: Product used for unknown indication
     Dosage: 5 MILLIGRAM, ONCE A DAY
     Route: 065
  4. BISOPROLOL [Concomitant]
     Active Substance: BISOPROLOL
     Indication: Product used for unknown indication
     Dosage: 5 MILLIGRAM, ONCE A DAY
     Route: 065
  5. DEFLAZACORT [Concomitant]
     Active Substance: DEFLAZACORT
     Indication: Product used for unknown indication
     Dosage: 45 MILLIGRAM, ONCE A DAY
     Route: 065
  6. LEVOTHYROXINE SODIUM [Concomitant]
     Active Substance: LEVOTHYROXINE SODIUM
     Indication: Product used for unknown indication
     Dosage: 25 MICROGRAM, ONCE A DAY
     Route: 065
  7. EZETIMIBE [Concomitant]
     Active Substance: EZETIMIBE
     Indication: Product used for unknown indication
     Dosage: 10 MILLIGRAM, ONCE A DAY
     Route: 065
  8. FENTANYL [Concomitant]
     Active Substance: FENTANYL
     Indication: Product used for unknown indication
     Dosage: 1 DOSAGE FORM (EVERY 72 HOURS) (50 ?G/H/1 PATCH/72 H)
     Route: 065
  9. ESCITALOPRAM OXALATE [Concomitant]
     Active Substance: ESCITALOPRAM OXALATE
     Indication: Product used for unknown indication
     Dosage: 10 MILLIGRAM, ONCE A DAY
     Route: 065
  10. LORAZEPAM [Concomitant]
     Active Substance: LORAZEPAM
     Indication: Product used for unknown indication
     Dosage: 0.5 MILLIGRAM, ONCE A DAY
     Route: 065
  11. MIRTAZAPINE [Concomitant]
     Active Substance: MIRTAZAPINE
     Indication: Product used for unknown indication
     Dosage: 30 MILLIGRAM, ONCE A DAY
     Route: 065
  12. NAPROXEN [Concomitant]
     Active Substance: NAPROXEN
     Indication: Product used for unknown indication
     Dosage: 500 MILLIGRAM, ONCE A DAY
     Route: 065
  13. OMEPRAZOLE [Concomitant]
     Active Substance: OMEPRAZOLE
     Indication: Product used for unknown indication
     Dosage: 20 MILLIGRAM, ONCE A DAY
     Route: 065
  14. CALCIUM PIDOLATE\CHOLECALCIFEROL [Concomitant]
     Active Substance: CALCIUM PIDOLATE\CHOLECALCIFEROL
     Indication: Product used for unknown indication
     Dosage: 1 DOSAGE FORM, ONCE A DAY (600 MG/400 IU/24 H)
     Route: 065
  15. CYANOCOBALAMIN [Concomitant]
     Active Substance: CYANOCOBALAMIN
     Indication: Product used for unknown indication
     Dosage: 1000 MICROGRAM (ONCE A MONTH)
     Route: 030
  16. TOPIRAMATE [Concomitant]
     Active Substance: TOPIRAMATE
     Indication: Product used for unknown indication
     Dosage: 100 MILLIGRAM, ONCE A DAY
     Route: 065
  17. TRAMADOL [Concomitant]
     Active Substance: TRAMADOL
     Indication: Product used for unknown indication
     Dosage: 100 MILLIGRAM, TWO TIMES A DAY
     Route: 065
  18. ZALDIAR [Concomitant]
     Active Substance: ACETAMINOPHEN\TRAMADOL HYDROCHLORIDE
     Indication: Product used for unknown indication
     Dosage: 2 DOSAGE FORM, 3 TIMES A DAY (37.5 MG/325MG/2CP/8H)
     Route: 065

REACTIONS (2)
  - Somnambulism [Recovered/Resolved]
  - Inappropriate schedule of product administration [Recovered/Resolved]
